FAERS Safety Report 11586996 (Version 1)
Quarter: 2015Q3

REPORT INFORMATION
  Report Type: Spontaneous
  Country: US (occurrence: US)
  Receive Date: 20150916
  Receipt Date: 20150916
  Transmission Date: 20151125
  Serious: No
  Sender: FDA-Public Use
  Company Number: US-ELI_LILLY_AND_COMPANY-US200802003915

PATIENT
  Age: 78 Year
  Sex: Female

DRUGS (2)
  1. DARVOCET [Concomitant]
     Active Substance: ACETAMINOPHEN\PROPOXYPHENE HYDROCHLORIDE
  2. FORTEO [Suspect]
     Active Substance: TERIPARATIDE
     Indication: FRACTURE
     Dosage: UNK, UNKNOWN
     Route: 058
     Dates: start: 20080122, end: 200802

REACTIONS (8)
  - Arthralgia [Recovering/Resolving]
  - Headache [Recovered/Resolved]
  - Myalgia [Recovering/Resolving]
  - Bone pain [Recovering/Resolving]
  - Pain in jaw [Recovering/Resolving]
  - Back pain [Recovering/Resolving]
  - Constipation [Unknown]
  - Flatulence [Unknown]

NARRATIVE: CASE EVENT DATE: 20080214
